FAERS Safety Report 16338028 (Version 1)
Quarter: 2019Q2

REPORT INFORMATION
  Report Type: Report from Study
  Country: None (occurrence: AU)
  Receive Date: 20190521
  Receipt Date: 20190521
  Transmission Date: 20190711
  Serious: Yes (Hospitalization)
  Sender: FDA-Public Use
  Company Number: AU-ABBVIE-19K-008-2786617-00

PATIENT
  Sex: Female

DRUGS (2)
  1. XELJANZ [Concomitant]
     Active Substance: TOFACITINIB CITRATE
     Indication: PRODUCT USED FOR UNKNOWN INDICATION
  2. HUMIRA [Suspect]
     Active Substance: ADALIMUMAB
     Indication: PSORIATIC ARTHROPATHY
     Route: 058
     Dates: end: 201904

REACTIONS (6)
  - Injection site urticaria [Recovering/Resolving]
  - Rash [Recovering/Resolving]
  - Psoriasis [Recovering/Resolving]
  - Arthritis reactive [Recovering/Resolving]
  - Urinary tract infection [Recovering/Resolving]
  - Tooth abscess [Recovering/Resolving]
